FAERS Safety Report 5347403-9 (Version None)
Quarter: 2007Q2

REPORT INFORMATION
  Report Type: 
  Country: None (occurrence: None)
  Receive Date: 20070606
  Receipt Date: 20070530
  Transmission Date: 20071010
  Serious: Yes (Other)
  Sender: FDA-Public Use
  Company Number: US-ASTRAZENECA-2007UW13219

PATIENT
  Age: 56 Year
  Sex: Female
  Weight: 55.3 kg

DRUGS (3)
  1. ARIMIDEX [Suspect]
     Indication: BREAST CANCER
     Route: 048
     Dates: start: 20061201
  2. CALCIUM CHLORIDE [Concomitant]
  3. VITAMIN CAP [Concomitant]

REACTIONS (1)
  - BLOOD CALCIUM INCREASED [None]
